FAERS Safety Report 9562948 (Version 2)
Quarter: 2013Q3

REPORT INFORMATION
  Report Type: Spontaneous
  Country: US (occurrence: US)
  Receive Date: 20130927
  Receipt Date: 20130927
  Transmission Date: 20140515
  Serious: Yes (Death)
  Sender: FDA-Public Use
  Company Number: US-TMC-CABO-13002803

PATIENT
  Sex: Female
  Weight: 51.8 kg

DRUGS (6)
  1. COMETRIQ [Suspect]
     Indication: THYROID CANCER
     Dosage: 60 MG, QD
     Route: 048
     Dates: start: 20130130
  2. LEVOTHYROXINE [Concomitant]
  3. ZOLPIDEM [Concomitant]
  4. NEXIUM [Concomitant]
  5. ZOMETA [Concomitant]
  6. DILAUDID [Concomitant]

REACTIONS (1)
  - Malignant neoplasm progression [Fatal]
